FAERS Safety Report 7457674-0 (Version None)
Quarter: 2011Q2

REPORT INFORMATION
  Report Type: 
  Country: None (occurrence: None)
  Receive Date: 20110504
  Receipt Date: 20110428
  Transmission Date: 20111010
  Serious: Yes (Life-Threatening)
  Sender: FDA-Public Use
  Company Number: JP-ROCHE-749321

PATIENT
  Sex: Male
  Weight: 80 kg

DRUGS (7)
  1. FLUOROURACIL [Concomitant]
     Dosage: DOSAGE IS UNCERTAIN.
     Route: 040
  2. FLUOROURACIL [Concomitant]
     Dosage: INTRAVENOUS DRIP.
     Route: 040
  3. LEVOFOLINATE [Concomitant]
     Dosage: DOSAGE IS UNCERTAIN.
     Route: 041
  4. IRINOTECAN HCL [Concomitant]
     Route: 041
  5. ELPLAT [Concomitant]
     Dosage: DOSAGE IS UNCERTAIN.
     Route: 041
  6. LEVOFOLINATE [Concomitant]
     Dosage: DOSAGE IS UNCERTAIN.
     Route: 041
  7. AVASTIN [Suspect]
     Indication: RECTAL CANCER METASTATIC
     Dosage: DOSAGE IS UNCERTAIN.
     Route: 041
     Dates: start: 20070101, end: 20100101

REACTIONS (2)
  - EMBOLIC CEREBRAL INFARCTION [None]
  - CAROTID ARTERIAL EMBOLUS [None]
